FAERS Safety Report 19005467 (Version 1)
Quarter: 2021Q1

REPORT INFORMATION
  Report Type: Spontaneous
  Country: JP (occurrence: JP)
  Receive Date: 20210313
  Receipt Date: 20210313
  Transmission Date: 20210420
  Serious: Yes (Hospitalization)
  Sender: FDA-Public Use
  Company Number: NVSJ2021JP003523

PATIENT

DRUGS (3)
  1. ENTRESTO [Suspect]
     Active Substance: SACUBITRIL\VALSARTAN
     Indication: PRODUCT USED FOR UNKNOWN INDICATION
     Dosage: 200 MG
     Route: 048
  2. ALDACTONE [Suspect]
     Active Substance: SPIRONOLACTONE
     Indication: BRAIN NATRIURETIC PEPTIDE INCREASED
     Dosage: UNK
     Route: 065
  3. ALDACTONE [Suspect]
     Active Substance: SPIRONOLACTONE
     Dosage: UNK
     Route: 065

REACTIONS (4)
  - Dehydration [Unknown]
  - Glomerular filtration rate decreased [Unknown]
  - Brain natriuretic peptide increased [Unknown]
  - Blood potassium increased [Unknown]
